FAERS Safety Report 6057684-4 (Version None)
Quarter: 2009Q1

REPORT INFORMATION
  Report Type: 
  Country: None (occurrence: None)
  Receive Date: 20090129
  Receipt Date: 20080211
  Transmission Date: 20090719
  Serious: No
  Sender: FDA-Public Use
  Company Number: A0706385A

PATIENT
  Age: 42 Year
  Sex: Male

DRUGS (2)
  1. MEPRON [Suspect]
     Dosage: 2TSP PER DAY
     Route: 048
     Dates: start: 20080117, end: 20080128
  2. HYDROCHLOROTHIAZIDE [Concomitant]
     Indication: HYPERTENSION
     Dosage: 1TAB PER DAY
     Route: 048

REACTIONS (3)
  - HYPERSENSITIVITY [None]
  - RASH MORBILLIFORM [None]
  - RASH PRURITIC [None]
